FAERS Safety Report 14021979 (Version 4)
Quarter: 2018Q3

REPORT INFORMATION
  Report Type: Report from Study
  Country: IT (occurrence: IT)
  Receive Date: 20170928
  Receipt Date: 20180809
  Transmission Date: 20181010
  Serious: Yes (Hospitalization, Other)
  Sender: FDA-Public Use
  Company Number: IT-ASCEND THERAPEUTICS-2028099

PATIENT
  Age: 57 Year
  Sex: Female

DRUGS (8)
  1. PAROXETINE. [Suspect]
     Active Substance: PAROXETINE
     Route: 065
  2. LOPERAMIDE [Suspect]
     Active Substance: LOPERAMIDE
     Route: 065
  3. LEVOTHYROXINE. [Suspect]
     Active Substance: LEVOTHYROXINE
     Route: 065
  4. NIMESULIDE [Suspect]
     Active Substance: NIMESULIDE
     Route: 065
  5. AMOXICILLIN/CLAVULANIC ACID (CLAVULANATE POTASSIUM, AMOXICILLIN TRIHYD [Suspect]
     Active Substance: AMOXICILLIN\CLAVULANATE POTASSIUM
     Route: 065
  6. ESTROGEL [Suspect]
     Active Substance: ESTRADIOL
     Indication: PRODUCT USED FOR UNKNOWN INDICATION
     Route: 065
  7. LANSOPRAZOLE. [Suspect]
     Active Substance: LANSOPRAZOLE
     Route: 065
  8. RIFAXIMIN (RIFAXIMIN) [Suspect]
     Active Substance: RIFAXIMIN
     Route: 048

REACTIONS (1)
  - Hepatocellular injury [Unknown]
